FAERS Safety Report 20265612 (Version 2)
Quarter: 2022Q2

REPORT INFORMATION
  Report Type: Spontaneous
  Country: US (occurrence: US)
  Receive Date: 20211231
  Receipt Date: 20220414
  Transmission Date: 20220720
  Serious: Yes (Hospitalization)
  Sender: FDA-Public Use
  Company Number: US-ELI_LILLY_AND_COMPANY-US202112010703

PATIENT
  Sex: Female

DRUGS (6)
  1. BAQSIMI [Suspect]
     Active Substance: GLUCAGON
     Indication: Blood glucose decreased
     Dosage: 3 MG, UNKNOWN
     Route: 065
     Dates: start: 20220103, end: 20220301
  2. LYUMJEV KWIKPEN [Suspect]
     Active Substance: INSULIN LISPRO
     Indication: Diabetes mellitus
     Dosage: 4 U, EACH MORNING
     Route: 065
  3. LYUMJEV KWIKPEN [Suspect]
     Active Substance: INSULIN LISPRO
     Dosage: 3 U, EACH EVENING
     Route: 065
  4. MIRTAZAPINE [Concomitant]
     Active Substance: MIRTAZAPINE
     Indication: Mental disorder
     Dosage: 30 MG, DAILY
  5. TRESIBA [Concomitant]
     Active Substance: INSULIN DEGLUDEC
     Indication: Diabetes mellitus
     Dosage: 12 U, DAILY
     Route: 065
  6. QUAZEPAM [Concomitant]
     Active Substance: QUAZEPAM
     Indication: Mental disorder
     Dosage: 300 MG, DAILY

REACTIONS (3)
  - Cerebral thrombosis [Unknown]
  - Fall [Unknown]
  - Blood glucose decreased [Unknown]
